FAERS Safety Report 6617648-6 (Version None)
Quarter: 2010Q1

REPORT INFORMATION
  Report Type: 
  Country: None (occurrence: None)
  Receive Date: 20100308
  Receipt Date: 20100224
  Transmission Date: 20100710
  Serious: Yes (Hospitalization)
  Sender: FDA-Public Use
  Company Number: US-BIOGENIDEC-2010BI006671

PATIENT
  Age: 47 Year
  Sex: Female

DRUGS (4)
  1. AVONEX [Suspect]
     Indication: MULTIPLE SCLEROSIS
     Route: 030
     Dates: start: 20020101, end: 20060101
  2. AVONEX [Suspect]
     Route: 030
     Dates: start: 20080101, end: 20090101
  3. AVONEX [Suspect]
     Route: 030
     Dates: start: 20100125
  4. TOPAMAX [Concomitant]

REACTIONS (6)
  - ANAEMIA [None]
  - CENTRAL NERVOUS SYSTEM LESION [None]
  - CONVULSION [None]
  - HEPATIC ENZYME INCREASED [None]
  - MEMORY IMPAIRMENT [None]
  - PAIN [None]
